FAERS Safety Report 6357236-2 (Version None)
Quarter: 2009Q3

REPORT INFORMATION
  Report Type: 
  Country: None (occurrence: None)
  Receive Date: 20090916
  Receipt Date: 20090915
  Transmission Date: 20100115
  Serious: Yes (Other)
  Sender: FDA-Public Use
  Company Number: US-RB-009755-09

PATIENT
  Sex: Female

DRUGS (2)
  1. SUBUTEX [Suspect]
     Dosage: DAILY DOSE UNKNOWN
     Route: 060
     Dates: start: 20081001
  2. SUBOXONE [Suspect]
     Dosage: DAILY DOSE UNKNOWN
     Route: 060
     Dates: start: 20080401, end: 20081001

REACTIONS (2)
  - DRUG EXPOSURE DURING PREGNANCY [None]
  - PNEUMONIA [None]
